FAERS Safety Report 15942576 (Version 1)
Quarter: 2019Q1

REPORT INFORMATION
  Report Type: Spontaneous
  Country: BE (occurrence: BE)
  Receive Date: 20190210
  Receipt Date: 20190210
  Transmission Date: 20190417
  Serious: Yes (Other)
  Sender: FDA-Public Use
  Company Number: PHHY2019BE028053

PATIENT
  Sex: Female

DRUGS (5)
  1. VINCRISTINE [Suspect]
     Active Substance: VINCRISTINE
     Indication: RESPIRATORY FAILURE
     Dosage: UNK UNK, 2 CYCLIC
     Route: 065
  2. DOXORUBICIN [Suspect]
     Active Substance: DOXORUBICIN
     Indication: RESPIRATORY FAILURE
     Dosage: UNK UNK, 2 CYCLIC
     Route: 065
  3. CYCLOPHOSPHAMIDE. [Suspect]
     Active Substance: CYCLOPHOSPHAMIDE
     Indication: RESPIRATORY FAILURE
     Dosage: UNK UNK, 2 CYCLIC
     Route: 065
  4. CARBOPLATIN. [Suspect]
     Active Substance: CARBOPLATIN
     Indication: RESPIRATORY FAILURE
     Dosage: UNK UNK, 2 CYCLIC
     Route: 065
  5. ETOPOSIDE. [Suspect]
     Active Substance: ETOPOSIDE
     Indication: RESPIRATORY FAILURE
     Dosage: UNK UNK, 2 CYCLIC
     Route: 065

REACTIONS (2)
  - Venous thrombosis limb [Unknown]
  - Respiratory tract infection [Unknown]
